FAERS Safety Report 6482026-X (Version None)
Quarter: 2009Q4

REPORT INFORMATION
  Report Type: 
  Country: None (occurrence: None)
  Receive Date: 20091208
  Receipt Date: 20090518
  Transmission Date: 20100525
  Serious: No
  Sender: FDA-Public Use
  Company Number: US-AMGEN-KDL341406

PATIENT
  Sex: Female
  Weight: 98.5 kg

DRUGS (12)
  1. ENBREL [Suspect]
     Indication: RHEUMATOID ARTHRITIS
     Route: 058
     Dates: start: 20090213, end: 20090401
  2. METHOTREXATE [Concomitant]
  3. UNSPECIFIED MEDICATION [Concomitant]
  4. ULTRAM [Concomitant]
  5. PLAQUENIL [Concomitant]
  6. FOLIC ACID [Concomitant]
  7. PREDNISONE [Concomitant]
  8. LISINOPRIL AND HYDROCHLOROTHIAZIDE [Concomitant]
  9. ATENOLOL [Concomitant]
  10. LASIX [Concomitant]
  11. MULTI-VITAMINS [Concomitant]
  12. ASPIRIN [Concomitant]

REACTIONS (5)
  - FATIGUE [None]
  - INJECTION SITE ERYTHEMA [None]
  - INJECTION SITE HAEMATOMA [None]
  - INJECTION SITE PAIN [None]
  - INJECTION SITE PRURITUS [None]
